FAERS Safety Report 21514839 (Version 1)
Quarter: 2022Q4

REPORT INFORMATION
  Report Type: Spontaneous
  Country: US (occurrence: None)
  Receive Date: 20221027
  Receipt Date: 20221027
  Transmission Date: 20230113
  Serious: No
  Sender: FDA-Public Use
  Company Number: None

PATIENT
  Age: 15 Year
  Sex: Male

DRUGS (1)
  1. NEEDLES [Suspect]
     Active Substance: NEEDLES
     Indication: Pyrexia
     Dosage: FREQUENCY : MONTHLY;?
     Route: 058
     Dates: start: 20210219

REACTIONS (5)
  - Wrong technique in product usage process [None]
  - Drug dose omission by device [None]
  - Wrong technique in device usage process [None]
  - Inappropriate schedule of product administration [None]
  - Needle issue [None]

NARRATIVE: CASE EVENT DATE: 20221021
